FAERS Safety Report 15183706 (Version 2)
Quarter: 2018Q3

REPORT INFORMATION
  Report Type: Report from Study
  Country: US (occurrence: US)
  Receive Date: 20180723
  Receipt Date: 20180807
  Transmission Date: 20181010
  Serious: Yes (Death, Hospitalization)
  Sender: FDA-Public Use
  Company Number: US-ACTELION-A-US2016-133104

PATIENT
  Age: 65 Year
  Sex: Male
  Weight: 126.8 kg

DRUGS (12)
  1. UPTRAVI [Suspect]
     Active Substance: SELEXIPAG
     Indication: PULMONARY ARTERIAL HYPERTENSION
     Dosage: 200 MCG, BID
     Route: 048
     Dates: start: 20160218
  2. ASPIRIN. [Concomitant]
     Active Substance: ASPIRIN
  3. LIPITOR [Concomitant]
     Active Substance: ATORVASTATIN CALCIUM
     Dosage: UNK
     Dates: start: 20150914
  4. UPTRAVI [Suspect]
     Active Substance: SELEXIPAG
     Dosage: 1000 MCG, BID
     Route: 048
  5. INSULIN [Concomitant]
     Active Substance: INSULIN NOS
     Dosage: UNK
     Dates: start: 20150914
  6. OPSUMIT [Suspect]
     Active Substance: MACITENTAN
     Indication: PULMONARY ARTERIAL HYPERTENSION
     Dosage: 10 MG, QD
     Route: 048
     Dates: start: 20150918
  7. VITAMIN B12 [Concomitant]
     Active Substance: CYANOCOBALAMIN
  8. UPTRAVI [Suspect]
     Active Substance: SELEXIPAG
     Dosage: 800 MCG, BID
     Route: 048
  9. SYNTHROID [Concomitant]
     Active Substance: LEVOTHYROXINE SODIUM
     Dosage: UNK
     Dates: start: 20170809
  10. REVATIO [Concomitant]
     Active Substance: SILDENAFIL CITRATE
     Dosage: UNK
     Dates: start: 20150914
  11. UPTRAVI [Suspect]
     Active Substance: SELEXIPAG
     Dosage: 1400 MCG, BID
     Route: 048
  12. TORSEMIDE. [Concomitant]
     Active Substance: TORSEMIDE

REACTIONS (33)
  - Multiple organ dysfunction syndrome [Fatal]
  - Pain in extremity [Fatal]
  - Sepsis [Fatal]
  - Headache [Unknown]
  - Dyspnoea exertional [Unknown]
  - Pain [Unknown]
  - Muscle tightness [Unknown]
  - Chest pain [Unknown]
  - Myalgia [Unknown]
  - Hypoaesthesia [Unknown]
  - Palpitations [Unknown]
  - Dysphagia [Unknown]
  - Localised infection [Fatal]
  - Dry mouth [Unknown]
  - Abdominal discomfort [Unknown]
  - Neck pain [Unknown]
  - Arthralgia [Unknown]
  - Blood pressure abnormal [Unknown]
  - Condition aggravated [Unknown]
  - Joint stiffness [Unknown]
  - Tongue disorder [Unknown]
  - Weight decreased [Unknown]
  - Gangrene [Fatal]
  - Dyspnoea [Unknown]
  - Hypotension [Unknown]
  - Chest discomfort [Unknown]
  - Musculoskeletal pain [Unknown]
  - Musculoskeletal stiffness [Unknown]
  - Septic shock [Fatal]
  - Lethargy [Unknown]
  - Diarrhoea [Unknown]
  - Pain in jaw [Unknown]
  - Throat tightness [Unknown]

NARRATIVE: CASE EVENT DATE: 20180709
